FAERS Safety Report 10712248 (Version 1)
Quarter: 2015Q1

REPORT INFORMATION
  Report Type: Spontaneous
  Country: CN (occurrence: CN)
  Receive Date: 20150114
  Receipt Date: 20150114
  Transmission Date: 20150721
  Serious: Yes (Hospitalization, Other)
  Sender: FDA-Public Use
  Company Number: CN-GLAXOSMITHKLINE-CN2015GSK001805

PATIENT
  Age: 24 Year
  Sex: Female

DRUGS (6)
  1. LAMOTRIGINE. [Suspect]
     Active Substance: LAMOTRIGINE
     Indication: EPILEPSY
     Dosage: 25 MG, QD
     Route: 048
     Dates: start: 20131029
  2. XINGNAOJING [Concomitant]
     Indication: PRODUCT USED FOR UNKNOWN INDICATION
     Route: 042
  3. CITICOLINE [Concomitant]
     Active Substance: CITICOLINE
     Indication: PRODUCT USED FOR UNKNOWN INDICATION
     Route: 042
  4. SHENSONG YANGXIN CAPSULE [Concomitant]
     Indication: PRODUCT USED FOR UNKNOWN INDICATION
  5. LAMOTRIGINE. [Suspect]
     Active Substance: LAMOTRIGINE
     Dosage: 50 MG, QD
     Route: 048
  6. LAMOTRIGINE. [Suspect]
     Active Substance: LAMOTRIGINE
     Dosage: 75 MG, QD
     Route: 048

REACTIONS (9)
  - Skin exfoliation [Recovered/Resolved]
  - Conjunctival hyperaemia [Recovered/Resolved]
  - Asthenia [Recovered/Resolved]
  - Hepatic function abnormal [Recovered/Resolved]
  - Dysphagia [Recovered/Resolved]
  - Conjunctival ulcer [Recovered/Resolved]
  - Generalised erythema [Recovered/Resolved]
  - Rash [Recovered/Resolved]
  - Acquired epidermolysis bullosa [Recovered/Resolved]

NARRATIVE: CASE EVENT DATE: 20131123
